FAERS Safety Report 8041118-4 (Version None)
Quarter: 2012Q1

REPORT INFORMATION
  Report Type: 
  Country: None (occurrence: None)
  Receive Date: 20120109
  Receipt Date: 20111228
  Transmission Date: 20120608
  Serious: Yes (Hospitalization)
  Sender: FDA-Public Use
  Company Number: DSA_48721_2012

PATIENT
  Age: 75 Year
  Sex: Female

DRUGS (16)
  1. METHOTREXATE [Concomitant]
  2. FOLIC ACID [Concomitant]
  3. FUROSEMIDE [Concomitant]
  4. OXYTETRACYCLINE [Concomitant]
  5. FERROUS SULFATE TAB [Concomitant]
  6. BISOPROLOL FUMARATE [Suspect]
     Indication: ATRIAL FIBRILLATION
     Dosage: (1.25 MG QD), (DF)
     Dates: start: 20110701
  7. BISOPROLOL FUMARATE [Suspect]
     Indication: ATRIAL FIBRILLATION
     Dosage: (1.25 MG QD), (DF)
     Dates: start: 20110928
  8. RAMIPRIL [Concomitant]
  9. ASPIRIN [Concomitant]
  10. VITAMIN D [Concomitant]
  11. CELEBREX [Concomitant]
  12. CALCIUM CARBONATE [Concomitant]
  13. DILTIAZEM [Suspect]
     Indication: HYPERTENSION
     Dosage: (DF), (DF)
     Dates: start: 20110928
  14. REMICADE [Suspect]
     Indication: RHEUMATOID ARTHRITIS
     Dosage: (DF INTRAVENOUS (NOT OTHERWISE SPECIFIED))
     Route: 042
     Dates: start: 20041021
  15. AMITRIPTYLINE HCL [Concomitant]
  16. FOSAMAX [Concomitant]

REACTIONS (7)
  - HEADACHE [None]
  - BRADYCARDIA [None]
  - PRESYNCOPE [None]
  - DIZZINESS [None]
  - ATRIAL FIBRILLATION [None]
  - VIRAL INFECTION [None]
  - NAUSEA [None]
